FAERS Safety Report 13762756 (Version 1)
Quarter: 2017Q3

REPORT INFORMATION
  Report Type: Spontaneous
  Country: US (occurrence: US)
  Receive Date: 20170718
  Receipt Date: 20170718
  Transmission Date: 20171127
  Serious: No
  Sender: FDA-Public Use
  Company Number: US-BRISTOL-MYERS SQUIBB COMPANY-BMS-2017-062500

PATIENT
  Sex: Male

DRUGS (2)
  1. OPDIVO [Suspect]
     Active Substance: NIVOLUMAB
     Indication: RENAL CANCER
     Dosage: 3 MG/KG, QWK
     Route: 042
     Dates: start: 20170322
  2. YERVOY [Suspect]
     Active Substance: IPILIMUMAB
     Indication: RENAL CANCER
     Dosage: 3 MG/KG, QWK
     Route: 042
     Dates: start: 20170322

REACTIONS (4)
  - Skin discolouration [Unknown]
  - Swelling [Unknown]
  - Off label use [Unknown]
  - Nasopharyngitis [Unknown]
